FAERS Safety Report 6006896-4 (Version None)
Quarter: 2008Q4

REPORT INFORMATION
  Report Type: 
  Country: None (occurrence: None)
  Receive Date: 20081217
  Receipt Date: 20081212
  Transmission Date: 20090506
  Serious: Yes (Death, Other)
  Sender: FDA-Public Use
  Company Number: AT-ROCHE-602726

PATIENT
  Sex: Male
  Weight: 74 kg

DRUGS (10)
  1. CAPECITABINE [Suspect]
     Indication: COLORECTAL CANCER
     Dosage: FREQUENCY REPORTED AS D1-D7.
     Route: 048
     Dates: start: 20080527, end: 20080613
  2. CAPECITABINE [Suspect]
     Route: 048
     Dates: start: 20080623
  3. BEVACIZUMAB [Suspect]
     Indication: COLORECTAL CANCER
     Dosage: DOSAGE FORM REPORTED AS INFUSION. TEMPORARILY INTERRUPTED
     Route: 042
     Dates: start: 20080527, end: 20080613
  4. BEVACIZUMAB [Suspect]
     Route: 042
     Dates: start: 20080623
  5. OXALIPLATIN [Suspect]
     Indication: COLORECTAL CANCER
     Dosage: DOSAGE FORM REPORTED AS INFUSION.
     Route: 042
     Dates: start: 20080527, end: 20080613
  6. OXALIPLATIN [Suspect]
     Route: 042
     Dates: start: 20080623
  7. NOVALGIN [Concomitant]
     Dosage: TDD: 60G/L
     Dates: start: 20080601
  8. IBUPROFEN [Concomitant]
     Dates: start: 20080601
  9. NEXIUM [Concomitant]
     Dates: start: 20080601
  10. NEORECORMON [Concomitant]
     Dates: start: 20080601

REACTIONS (2)
  - PNEUMOTHORAX [None]
  - PULMONARY OEDEMA [None]
